FAERS Safety Report 6387274-5 (Version None)
Quarter: 2009Q3

REPORT INFORMATION
  Report Type: 
  Country: None (occurrence: None)
  Receive Date: 20090928
  Receipt Date: 20090910
  Transmission Date: 20100115
  Serious: Yes (Other)
  Sender: FDA-Public Use
  Company Number: USA-09-0013-PRCH

PATIENT
  Sex: Female

DRUGS (3)
  1. PROGESTERONE [Suspect]
     Indication: HORMONE REPLACEMENT THERAPY
     Dosage: 4%, VAGINAL, 2X WEEKLY
     Route: 067
     Dates: start: 20061206, end: 20080901
  2. PREMARIN [Concomitant]
  3. SYNTHROID [Concomitant]

REACTIONS (1)
  - ENDOMETRIAL CANCER [None]
